FAERS Safety Report 23223997 (Version 1)
Quarter: 2023Q4

REPORT INFORMATION
  Report Type: Spontaneous
  Country: PL (occurrence: PL)
  Receive Date: 20231124
  Receipt Date: 20231124
  Transmission Date: 20240110
  Serious: Yes (Hospitalization)
  Sender: FDA-Public Use
  Company Number: PL-NOVOPROD-1143291

PATIENT
  Age: 30 Year
  Sex: Male

DRUGS (3)
  1. LIRAGLUTIDE [Suspect]
     Active Substance: LIRAGLUTIDE
     Indication: Type 2 diabetes mellitus
     Dosage: 0.6 MG, QD, AFER 4 WEEKS PATIENT WAS EXPECTED TO ICREASE TO 1.2 MG
     Route: 058
  2. METFORMIN HYDROCHLORIDE [Suspect]
     Active Substance: METFORMIN HYDROCHLORIDE
     Indication: Type 2 diabetes mellitus
     Dosage: 750 MG, QD AAFER 2 WEEKS, THE PATIENT WAS EXPECTED TO INCREASE TO 1.5 G/D
     Route: 048
  3. EMPAGLIFLOZIN [Suspect]
     Active Substance: EMPAGLIFLOZIN
     Indication: Type 2 diabetes mellitus
     Dosage: 10 MG, QD

REACTIONS (2)
  - Diabetic ketoacidosis [Unknown]
  - Treatment noncompliance [Recovered/Resolved]
